FAERS Safety Report 8834796 (Version 10)
Quarter: 2013Q4

REPORT INFORMATION
  Report Type: Spontaneous
  Country: US (occurrence: US)
  Receive Date: 20121010
  Receipt Date: 20131101
  Transmission Date: 20140711
  Serious: Yes (Death, Hospitalization)
  Sender: FDA-Public Use
  Company Number: US-GLAXOSMITHKLINE-A0994199A

PATIENT
  Age: 60 Year
  Sex: Male

DRUGS (15)
  1. FLOLAN [Suspect]
     Indication: COR PULMONALE CHRONIC
     Dosage: 37.8NGKM CONTINUOUS
     Route: 042
     Dates: start: 20060324
  2. MORPHINE [Suspect]
     Indication: PAIN
  3. ADCIRCA [Concomitant]
  4. LETAIRIS [Concomitant]
  5. COUMADIN [Concomitant]
  6. LIPITOR [Concomitant]
  7. MIRALAX [Concomitant]
  8. TORSEMIDE [Concomitant]
  9. SPIRIVA [Concomitant]
  10. SYNTHROID [Concomitant]
  11. ZANTAC [Concomitant]
  12. ASPIRIN [Concomitant]
  13. OS-CAL [Concomitant]
  14. POTASSIUM [Concomitant]
  15. FOSAMAX [Concomitant]

REACTIONS (20)
  - Pulmonary oedema [Recovered/Resolved]
  - Phimosis [Recovered/Resolved]
  - Respiratory distress [Unknown]
  - Respiratory depression [Recovered/Resolved]
  - Cardiac failure [Unknown]
  - Overdose [Recovered/Resolved]
  - Blood pressure decreased [Recovered/Resolved]
  - Pleural effusion [Recovered/Resolved]
  - Dyspnoea [Unknown]
  - Eye pruritus [Unknown]
  - Infusion site erythema [Not Recovered/Not Resolved]
  - Infusion site infection [Not Recovered/Not Resolved]
  - Sinusitis [Unknown]
  - Epistaxis [Unknown]
  - Dehydration [Unknown]
  - Asthenia [Unknown]
  - Pyrexia [Unknown]
  - Chills [Unknown]
  - Productive cough [Unknown]
  - Death [Fatal]
